FAERS Safety Report 10013758 (Version 1)
Quarter: 2014Q1

REPORT INFORMATION
  Report Type: Spontaneous
  Country: US (occurrence: US)
  Receive Date: 20140316
  Receipt Date: 20140316
  Transmission Date: 20141002
  Serious: No
  Sender: FDA-Public Use
  Company Number: US-BAYER-2014-039309

PATIENT
  Age: 53 Year
  Sex: Female
  Weight: 56.69 kg

DRUGS (14)
  1. ALEVE GELCAPS [Suspect]
     Indication: ANALGESIC THERAPY
     Dosage: 2 DF, QD
     Route: 048
     Dates: start: 201401, end: 20140312
  2. AMPYRA [Concomitant]
     Dosage: UNK
  3. BACLOFEN [Concomitant]
     Dosage: UNK
  4. VESICARE [Concomitant]
     Dosage: UNK
  5. SIMVASTATIN [Concomitant]
     Dosage: UNK
  6. TRAZODONE [Concomitant]
     Dosage: UNK
  7. DESMOPRESSIN [Concomitant]
     Dosage: UNK
  8. MULTIVITAMIN [Concomitant]
     Dosage: UNK
  9. ASPIRIN [Concomitant]
     Dosage: UNK
  10. VITAMIN B COMPLEX [Concomitant]
     Dosage: UNK
  11. CRANBERRY [Concomitant]
     Dosage: UNK
  12. FLORASTOR [Concomitant]
     Dosage: UNK
  13. ACIDOPHILUS [Concomitant]
     Dosage: UNK
  14. CALCIUM [CALCIUM] [Concomitant]
     Dosage: UNK

REACTIONS (1)
  - Incorrect drug administration duration [None]
